FAERS Safety Report 15401837 (Version 1)
Quarter: 2018Q3

REPORT INFORMATION
  Report Type: Spontaneous
  Country: US (occurrence: US)
  Receive Date: 20180912
  Receipt Date: 20180912
  Transmission Date: 20181010
  Serious: No
  Sender: FDA-Public Use
  Company Number: None

PATIENT
  Age: 73 Year
  Sex: Female

DRUGS (1)
  1. NINLARO [Suspect]
     Active Substance: IXAZOMIB CITRATE
     Dosage: 3MG CAPS :TAKE ONE CAPSULE ON DAYS 1,8 AND 15 BY MOUTH?
     Route: 048
     Dates: start: 20171218, end: 20180911

REACTIONS (1)
  - Nasopharyngitis [None]
